FAERS Safety Report 4660472-4 (Version None)
Quarter: 2005Q2

REPORT INFORMATION
  Report Type: 
  Country: None (occurrence: None)
  Receive Date: 20050512
  Receipt Date: 20050507
  Transmission Date: 20051028
  Serious: Yes (Hospitalization)
  Sender: FDA-Public Use
  Company Number: GB-GLAXOSMITHKLINE-B0380238A

PATIENT
  Age: 89 Year
  Sex: Female

DRUGS (5)
  1. PAROXETINE [Suspect]
     Indication: DEPRESSION
     Dosage: 20MG PER DAY
     Route: 048
  2. ASPIRIN [Suspect]
     Indication: PROPHYLAXIS
     Dosage: 75MG PER DAY
     Route: 048
     Dates: end: 20050417
  3. PERINDOPRIL [Concomitant]
     Indication: HYPERTENSION
     Dosage: 4MG PER DAY
     Route: 048
     Dates: start: 20050415
  4. FUROSEMIDE [Concomitant]
     Indication: HYPERTENSION
     Route: 065
  5. SPIRONOLACTONE [Concomitant]
     Indication: HYPERTENSION
     Dosage: 25MG PER DAY
     Route: 048
     Dates: start: 20050416

REACTIONS (1)
  - GASTROINTESTINAL HAEMORRHAGE [None]
